FAERS Safety Report 5568522-8 (Version None)
Quarter: 2007Q4

REPORT INFORMATION
  Report Type: 
  Country: None (occurrence: None)
  Receive Date: 20071220
  Receipt Date: 20071217
  Transmission Date: 20080405
  Serious: Yes (Hospitalization, Other)
  Sender: FDA-Public Use
  Company Number: JP-WYE-H01759207

PATIENT
  Age: 77 Year
  Sex: Male

DRUGS (3)
  1. TAZOCIN [Suspect]
     Indication: INFECTION PROPHYLAXIS
     Route: 042
     Dates: start: 20071205, end: 20071207
  2. MUCOSTA [Concomitant]
     Dosage: UNKNOWN DOSE AND FREQUENCY
     Route: 048
  3. LOXONIN [Suspect]
     Dosage: UNKNOWN DOSE AND FREQUENCY
     Route: 048

REACTIONS (1)
  - DISSEMINATED INTRAVASCULAR COAGULATION [None]
